FAERS Safety Report 5511672-2 (Version None)
Quarter: 2007Q4

REPORT INFORMATION
  Report Type: 
  Country: None (occurrence: None)
  Receive Date: 20071109
  Receipt Date: 20071030
  Transmission Date: 20080405
  Serious: Yes (Life-Threatening, Hospitalization)
  Sender: FDA-Public Use
  Company Number: US-BAYER-200713518BCC

PATIENT
  Age: 74 Year
  Sex: Male
  Weight: 103 kg

DRUGS (7)
  1. ASPIRIN [Suspect]
     Indication: PERCUTANEOUS CORONARY INTERVENTION
     Dosage: TOTAL DAILY DOSE: 325 MG  UNIT DOSE: 325 MG
     Route: 048
     Dates: start: 20071002, end: 20071003
  2. CANGRELOR VS. PLACEBO [Suspect]
     Indication: PERCUTANEOUS CORONARY INTERVENTION
     Route: 040
     Dates: start: 20071001, end: 20071001
  3. CLOPIDOGREL [Suspect]
     Indication: PERCUTANEOUS CORONARY INTERVENTION
     Route: 048
     Dates: start: 20071001, end: 20071001
  4. CLOPIDOGREL [Suspect]
     Indication: ANTICOAGULANT THERAPY
     Dosage: TOTAL DAILY DOSE: 75 MG
     Route: 048
  5. HEPARIN [Suspect]
     Indication: ANTICOAGULANT THERAPY
     Route: 042
  6. EPTIFIBATIDE [Suspect]
     Indication: ANTICOAGULANT THERAPY
     Route: 042
     Dates: start: 20071001, end: 20071002
  7. INTEGRILIN [Concomitant]

REACTIONS (5)
  - ECCHYMOSIS [None]
  - EPISTAXIS [None]
  - PETECHIAE [None]
  - PLATELET COUNT DECREASED [None]
  - THROMBOCYTOPENIA [None]
